FAERS Safety Report 23302486 (Version 1)
Quarter: 2023Q4

REPORT INFORMATION
  Report Type: Spontaneous
  Country: PL (occurrence: PL)
  Receive Date: 20231215
  Receipt Date: 20231215
  Transmission Date: 20240109
  Serious: Yes (Other)
  Sender: FDA-Public Use
  Company Number: None

PATIENT
  Age: 68 Year
  Sex: Female
  Weight: 78 kg

DRUGS (1)
  1. FUROSEMIDE [Suspect]
     Active Substance: FUROSEMIDE
     Indication: Localised oedema
     Dosage: ROA - INTRAVENOUS INFUSION
     Route: 042
     Dates: start: 20190524, end: 20190603

REACTIONS (1)
  - Metabolic alkalosis [Recovered/Resolved]
